FAERS Safety Report 17995035 (Version 1)
Quarter: 2020Q3

REPORT INFORMATION
  Report Type: Spontaneous
  Country: US (occurrence: US)
  Receive Date: 20200707
  Receipt Date: 20200707
  Transmission Date: 20201103
  Serious: Yes (Life-Threatening, Hospitalization)
  Sender: FDA-Public Use
  Company Number: None

PATIENT
  Age: 70 Year
  Sex: Male

DRUGS (2)
  1. SPIRONOLACTONE (SPIRONOLACTONE 25MG TAB) [Suspect]
     Active Substance: SPIRONOLACTONE
     Indication: CARDIAC FAILURE CONGESTIVE
     Route: 048
     Dates: start: 20120201
  2. FUROSEMIDE (FUROSEMIDE 80MG TAB) [Suspect]
     Active Substance: FUROSEMIDE
     Indication: CARDIAC FAILURE CONGESTIVE
     Route: 048
     Dates: start: 20190101

REACTIONS (4)
  - Chest pain [None]
  - Hyponatraemia [None]
  - Hypotension [None]
  - Dizziness [None]

NARRATIVE: CASE EVENT DATE: 20200401
